FAERS Safety Report 24899879 (Version 2)
Quarter: 2025Q2

REPORT INFORMATION
  Report Type: Spontaneous
  Country: MY (occurrence: MY)
  Receive Date: 20250129
  Receipt Date: 20250407
  Transmission Date: 20250717
  Serious: No
  Sender: AMERICAN REGENT
  Company Number: MY-AMERICAN REGENT INC-2025000416

PATIENT
  Age: 20 Year
  Sex: Female

DRUGS (1)
  1. VENOFER [Suspect]
     Active Substance: IRON SUCROSE
     Indication: Anaemia
     Route: 041

REACTIONS (1)
  - Urticaria [Recovered/Resolved]
